FAERS Safety Report 13113231 (Version 1)
Quarter: 2017Q1

REPORT INFORMATION
  Report Type: Spontaneous
  Country: US (occurrence: US)
  Receive Date: 20170112
  Receipt Date: 20170112
  Transmission Date: 20170428
  Serious: No
  Sender: FDA-Public Use
  Company Number: None

PATIENT
  Age: 39 Year
  Sex: Male

DRUGS (6)
  1. AMPYRA [Suspect]
     Active Substance: DALFAMPRIDINE
     Indication: MULTIPLE SCLEROSIS
     Route: 048
     Dates: start: 20150415, end: 20170111
  2. PREDNISONE. [Concomitant]
     Active Substance: PREDNISONE
  3. SILDENAFIL. [Concomitant]
     Active Substance: SILDENAFIL
  4. OXYBUTYNIN [Concomitant]
     Active Substance: OXYBUTYNIN
  5. SOLIFENACIN [Concomitant]
     Active Substance: SOLIFENACIN
  6. GILENYA [Concomitant]
     Active Substance: FINGOLIMOD HYDROCHLORIDE

REACTIONS (2)
  - Therapy cessation [None]
  - Headache [None]

NARRATIVE: CASE EVENT DATE: 20170112
